FAERS Safety Report 11805877 (Version 1)
Quarter: 2015Q4

REPORT INFORMATION
  Report Type: Spontaneous
  Country: US (occurrence: US)
  Receive Date: 20151207
  Receipt Date: 20151207
  Transmission Date: 20160305
  Serious: Yes (Hospitalization)
  Sender: FDA-Public Use
  Company Number: US-AUROBINDO-AUR-APL-2015-11116

PATIENT
  Age: 31 Year
  Sex: Male

DRUGS (3)
  1. HALOPERIDOL. [Concomitant]
     Active Substance: HALOPERIDOL
     Indication: AGITATION
     Dosage: 1 MG BY MOUTH OR INTRAVENOUSLY EVERY 4 HOURS AS NEEDED
     Route: 050
  2. ALPRAZOLAM 2MG [Suspect]
     Active Substance: ALPRAZOLAM
     Indication: ANXIETY
  3. ALPRAZOLAM 2MG [Suspect]
     Active Substance: ALPRAZOLAM
     Indication: INSOMNIA
     Dosage: 2 MG, AT BED TIME
     Route: 065

REACTIONS (25)
  - Urinary incontinence [Recovered/Resolved]
  - Delirium [Recovered/Resolved]
  - Distractibility [Recovered/Resolved]
  - Negativism [Recovered/Resolved]
  - Lethargy [Recovered/Resolved]
  - Condition aggravated [Recovered/Resolved]
  - Psychomotor hyperactivity [Recovered/Resolved]
  - Dyskinesia [Recovered/Resolved]
  - Abnormal behaviour [Recovered/Resolved]
  - Thinking abnormal [Recovered/Resolved]
  - Catatonia [Recovered/Resolved]
  - Blood bilirubin increased [Recovered/Resolved]
  - Mental status changes [Recovered/Resolved]
  - Confusional state [Recovered/Resolved]
  - Withdrawal syndrome [Recovered/Resolved]
  - Hallucination [Recovered/Resolved]
  - Echolalia [Recovered/Resolved]
  - Restlessness [Recovered/Resolved]
  - Verbigeration [Recovered/Resolved]
  - Muscle tone disorder [Recovered/Resolved]
  - Activities of daily living impaired [Recovered/Resolved]
  - Illogical thinking [Recovered/Resolved]
  - Echopraxia [Recovered/Resolved]
  - Intentional product use issue [Recovered/Resolved]
  - Disorientation [Recovered/Resolved]
